FAERS Safety Report 11263234 (Version 2)
Quarter: 2017Q1

REPORT INFORMATION
  Report Type: Spontaneous
  Country: US (occurrence: US)
  Receive Date: 20150711
  Receipt Date: 20170127
  Transmission Date: 20170428
  Serious: Yes (Congenital Anomaly, Other)
  Sender: FDA-Public Use
  Company Number: US-APOTEX-2015AP008289

PATIENT
  Sex: Female

DRUGS (2)
  1. PAXIL [Suspect]
     Active Substance: PAROXETINE HYDROCHLORIDE
     Indication: PRODUCT USED FOR UNKNOWN INDICATION
     Route: 064
  2. PAXIL [Suspect]
     Active Substance: PAROXETINE HYDROCHLORIDE
     Dosage: 20 MG, UNK
     Route: 064

REACTIONS (3)
  - Cleft palate [Unknown]
  - Foetal exposure during pregnancy [Unknown]
  - Cardiac murmur [Unknown]
